FAERS Safety Report 9737958 (Version 2)
Quarter: 2013Q4

REPORT INFORMATION
  Report Type: Spontaneous
  Country: US (occurrence: US)
  Receive Date: 20131208
  Receipt Date: 20131208
  Transmission Date: 20140711
  Serious: No
  Sender: FDA-Public Use
  Company Number: US-SA-RENA-1002140

PATIENT
  Sex: Male

DRUGS (2)
  1. RENVELA [Suspect]
     Indication: PRODUCT USED FOR UNKNOWN INDICATION
     Dosage: 12.8 G, QD (800 MG TABLETS-4 TABS TID WITH MEALS AND 2 TABS WITH SNACKS)
     Route: 048
  2. RENVELA [Suspect]
     Indication: PRODUCT USED FOR UNKNOWN INDICATION
     Dosage: RENVELA 800 MG TABLETS - 4 TABS PO TID WITH MEALS
     Route: 048

REACTIONS (2)
  - Constipation [Not Recovered/Not Resolved]
  - Pruritus [Not Recovered/Not Resolved]
